FAERS Safety Report 5367955-2 (Version None)
Quarter: 2007Q2

REPORT INFORMATION
  Report Type: 
  Country: None (occurrence: None)
  Receive Date: 20070622
  Receipt Date: 20070613
  Transmission Date: 20071010
  Serious: Yes (Other)
  Sender: FDA-Public Use
  Company Number: US-PFIZER INC-2007031819

PATIENT
  Sex: Male
  Weight: 76.2 kg

DRUGS (7)
  1. CHANTIX [Suspect]
     Indication: SMOKING CESSATION THERAPY
     Dates: start: 20070412, end: 20070412
  2. LEXAPRO [Concomitant]
  3. REMERON [Concomitant]
  4. METHADONE HCL [Concomitant]
  5. RELAFEN [Concomitant]
  6. VALIUM [Concomitant]
  7. OMEPRAZOLE [Concomitant]

REACTIONS (7)
  - HALLUCINATION [None]
  - INSOMNIA [None]
  - LOCALISED OEDEMA [None]
  - PRURITUS [None]
  - RASH [None]
  - STOMACH DISCOMFORT [None]
  - SWELLING FACE [None]
